FAERS Safety Report 13019693 (Version 2)
Quarter: 2018Q2

REPORT INFORMATION
  Report Type: Spontaneous
  Country: US (occurrence: US)
  Receive Date: 20161212
  Receipt Date: 20180605
  Transmission Date: 20180711
  Serious: No
  Sender: FDA-Public Use
  Company Number: US-ROCHE-1790858

PATIENT
  Sex: Female

DRUGS (9)
  1. IBUPROFEN. [Concomitant]
     Active Substance: IBUPROFEN
  2. ALBUTEROL. [Concomitant]
     Active Substance: ALBUTEROL
  3. ZOLOFT [Concomitant]
     Active Substance: SERTRALINE HYDROCHLORIDE
  4. ACTEMRA [Suspect]
     Active Substance: TOCILIZUMAB
     Indication: RHEUMATOID ARTHRITIS
     Dosage: 200MG/10ML
     Route: 042
     Dates: start: 20130312
  5. ATENOLOL. [Concomitant]
     Active Substance: ATENOLOL
  6. METHOTREXATE. [Concomitant]
     Active Substance: METHOTREXATE
  7. ACTEMRA [Suspect]
     Active Substance: TOCILIZUMAB
     Route: 042
  8. PREDNISONE. [Concomitant]
     Active Substance: PREDNISONE
  9. FOLIC ACID. [Concomitant]
     Active Substance: FOLIC ACID

REACTIONS (2)
  - Sinusitis [Unknown]
  - Dyspnoea [Unknown]
